FAERS Safety Report 5109709-8 (Version None)
Quarter: 2006Q3

REPORT INFORMATION
  Report Type: 
  Country: None (occurrence: None)
  Receive Date: 20060918
  Receipt Date: 20060830
  Transmission Date: 20061208
  Serious: Yes (Hospitalization)
  Sender: FDA-Public Use
  Company Number: FR200609000011

PATIENT

DRUGS (8)
  1. FORTEO [Suspect]
     Indication: OSTEOPOROSIS
     Dosage: 20 UG, DAILY (1/D), SUBCUTANEOUS
     Route: 058
     Dates: start: 20060306
  2. FORTEO PEN (FORTEO PEN) [Concomitant]
  3. OROCOL (CALCIUM CARBONATE) [Concomitant]
  4. ARAVA [Concomitant]
  5. NOVOMIX (INSULIN ASPART) [Concomitant]
  6. CORTANCYL [Concomitant]
  7. KETOPROFEN [Concomitant]
  8. INIPOMP (PANTOPRAZOLE) [Concomitant]

REACTIONS (3)
  - FALL [None]
  - FEMORAL NECK FRACTURE [None]
  - HYPERTENSION [None]
